FAERS Safety Report 8217380-1 (Version None)
Quarter: 2012Q1

REPORT INFORMATION
  Report Type: 
  Country: None (occurrence: None)
  Receive Date: 20120319
  Receipt Date: 20120312
  Transmission Date: 20120608
  Serious: Yes (Hospitalization, Other)
  Sender: FDA-Public Use
  Company Number: US-BAYER-201040735NA

PATIENT
  Age: 29 Year
  Sex: Female
  Weight: 118.82 kg

DRUGS (14)
  1. MOTRIN [Concomitant]
     Indication: PAIN
     Dosage: 600 MG, PRN
     Route: 048
     Dates: start: 20080903
  2. METFORMIN HYDROCHLORIDE [Concomitant]
     Indication: DIABETES MELLITUS
     Dosage: UNK
     Dates: start: 20040101
  3. DROSPIRENONE AND ETHINYL ESTRADIOL [Suspect]
     Indication: CONTRACEPTION
     Dates: start: 20080901, end: 20090815
  4. TORADOL [Concomitant]
     Dosage: 30 MG, UNK
     Route: 042
     Dates: start: 20080903
  5. YASMIN [Suspect]
  6. SENOKOT [Concomitant]
     Dosage: UNK
     Dates: start: 20080903
  7. SERTRALINE HYDROCHLORIDE [Concomitant]
     Indication: ANXIETY
     Dosage: UNK
     Dates: start: 20040101
  8. METFORMIN HYDROCHLORIDE [Concomitant]
  9. MULTI-VITAMINS [Concomitant]
  10. PERCOCET [Concomitant]
     Indication: PAIN
     Dosage: UNK UNK, PRN
     Dates: start: 20080903
  11. SIMETHICONE [Concomitant]
     Dosage: 80 MG, UNK
     Route: 048
     Dates: start: 20080903
  12. ZOLOFT [Concomitant]
  13. FAMOTIDINE [Concomitant]
     Dosage: 20 MG, UNK
     Route: 048
     Dates: start: 20080903
  14. ZOFRAN [Concomitant]
     Indication: NAUSEA
     Dosage: 4 MG, UNK
     Route: 042
     Dates: start: 20080903

REACTIONS (4)
  - ANXIETY [None]
  - CHOLECYSTITIS CHRONIC [None]
  - PANIC ATTACK [None]
  - GALLBLADDER DISORDER [None]
